FAERS Safety Report 14663761 (Version 1)
Quarter: 2018Q1

REPORT INFORMATION
  Report Type: Spontaneous
  Country: US (occurrence: US)
  Receive Date: 20180321
  Receipt Date: 20180321
  Transmission Date: 20180509
  Serious: No
  Sender: FDA-Public Use
  Company Number: US-BAYER-2018-047491

PATIENT
  Age: 4 Year
  Sex: Female

DRUGS (3)
  1. NEXAVAR [Suspect]
     Active Substance: SORAFENIB
     Indication: FIBROMATOSIS
     Dosage: 400 ONCE A DAY
     Dates: start: 201708, end: 201711
  2. NEXAVAR [Suspect]
     Active Substance: SORAFENIB
     Indication: FIBROMATOSIS
     Dosage: 400 MG, QD
     Dates: start: 2018
  3. NEXAVAR [Suspect]
     Active Substance: SORAFENIB
     Indication: FIBROMATOSIS
     Dosage: 200 MG, QD
     Dates: start: 201801, end: 2018

REACTIONS (4)
  - Exposure via skin contact [None]
  - Rash papular [Not Recovered/Not Resolved]
  - Rash macular [Not Recovered/Not Resolved]
  - Exposure via body fluid [None]

NARRATIVE: CASE EVENT DATE: 20180309
